FAERS Safety Report 11219164 (Version 13)
Quarter: 2016Q3

REPORT INFORMATION
  Report Type: Report from Study
  Country: BR (occurrence: BR)
  Receive Date: 20150625
  Receipt Date: 20160719
  Transmission Date: 20161109
  Serious: Yes (Life-Threatening, Hospitalization)
  Sender: FDA-Public Use
  Company Number: PHHY2015BR075849

PATIENT
  Sex: Male
  Weight: 57 kg

DRUGS (4)
  1. SIMVASTATIN. [Concomitant]
     Active Substance: SIMVASTATIN
     Indication: BLOOD CHOLESTEROL INCREASED
     Dosage: 1 DF, QHS AT NIGHT
     Route: 048
     Dates: start: 2012
  2. SANDOSTATIN LAR DEPOT [Suspect]
     Active Substance: OCTREOTIDE ACETATE
     Indication: NEUROENDOCRINE TUMOUR
     Dosage: 30 MG, QMO (EVERY 28 DAYS)
     Route: 030
     Dates: start: 201306
  3. OMEPRAZOLE. [Concomitant]
     Active Substance: OMEPRAZOLE
     Indication: GASTRIC DISORDER
     Dosage: 20 MG, QD
     Route: 048
  4. INSULIN [Concomitant]
     Active Substance: INSULIN NOS
     Indication: DIABETES MELLITUS
     Dosage: 30 U, QD (20 U IN THE MORNING AND 10 U AT NIGHT)
     Route: 058

REACTIONS (29)
  - Coma [Recovering/Resolving]
  - Cholelithiasis [Recovered/Resolved]
  - Vomiting [Unknown]
  - Weight decreased [Unknown]
  - Swelling [Unknown]
  - Dizziness [Unknown]
  - Bacterial infection [Recovering/Resolving]
  - Intra-abdominal fluid collection [Unknown]
  - Malaise [Unknown]
  - Chest pain [Recovered/Resolved]
  - Oral discomfort [Recovered/Resolved]
  - Erythema [Recovered/Resolved]
  - Faeces discoloured [Recovered/Resolved]
  - Diarrhoea [Unknown]
  - Ocular hyperaemia [Recovered/Resolved]
  - General physical health deterioration [Unknown]
  - Dehydration [Unknown]
  - Abdominal pain [Unknown]
  - Aphonia [Recovered/Resolved]
  - Decreased immune responsiveness [Unknown]
  - Stomatitis [Recovered/Resolved]
  - Gastrooesophageal reflux disease [Recovering/Resolving]
  - Infrequent bowel movements [Unknown]
  - Cough [Unknown]
  - Dyspnoea [Recovered/Resolved]
  - Abdominal pain upper [Recovering/Resolving]
  - Cholecystitis [Recovering/Resolving]
  - Peripheral swelling [Recovered/Resolved]
  - Weight increased [Unknown]

NARRATIVE: CASE EVENT DATE: 2013
